FAERS Safety Report 5426604-5 (Version None)
Quarter: 2007Q3

REPORT INFORMATION
  Report Type: 
  Country: None (occurrence: None)
  Receive Date: 20070731
  Receipt Date: 20070404
  Transmission Date: 20080115
  Serious: No
  Sender: FDA-Public Use
  Company Number: 2006PV018891

PATIENT
  Age: 56 Year
  Sex: Female

DRUGS (8)
  1. EXENATIDE(EXENATIDE) PEN, DISPOSABLE [Suspect]
     Indication: TYPE 2 DIABETES MELLITUS
     Dosage: 5 UG, 2/D, SUBCUTANEOUS
     Route: 058
     Dates: start: 20060501
  2. LANTUS [Concomitant]
  3. GLYBURIDE [Concomitant]
  4. DIOVAN (HYDROCHLOROTHIAZIDE, VALSARTAN) [Concomitant]
  5. SPIRONOLACTONE [Concomitant]
  6. TORSEMIDE [Concomitant]
  7. MAGNESIUM OXIDE [Concomitant]
  8. LEVOTHYROXINE SODIUM [Concomitant]

REACTIONS (3)
  - GOUT [None]
  - KLEBSIELLA INFECTION [None]
  - MUSCULOSKELETAL PAIN [None]
